FAERS Safety Report 7831502-3 (Version None)
Quarter: 2011Q4

REPORT INFORMATION
  Report Type: 
  Country: None (occurrence: None)
  Receive Date: 20111021
  Receipt Date: 20111021
  Transmission Date: 20120403
  Serious: Yes (Hospitalization)
  Sender: FDA-Public Use
  Company Number: None

PATIENT
  Age: 78 Year
  Sex: Male
  Weight: 78.8 kg

DRUGS (1)
  1. AZITHROMYCIN [Suspect]
     Indication: PNEUMONIA
     Dosage: 500 MG
     Route: 042

REACTIONS (1)
  - PRURITUS [None]
